FAERS Safety Report 14966926 (Version 1)
Quarter: 2018Q3

REPORT INFORMATION
  Report Type: Spontaneous
  Country: US (occurrence: US)
  Receive Date: 20180604
  Receipt Date: 20180604
  Transmission Date: 20181010
  Serious: No
  Sender: FDA-Public Use
  Company Number: US-TEVA-2018-US-897235

PATIENT
  Sex: Female

DRUGS (1)
  1. OXYBUTYNIN OTC FOR WOMEN [Suspect]
     Active Substance: OXYBUTYNIN
     Indication: CYSTITIS INTERSTITIAL
     Route: 062

REACTIONS (2)
  - Off label use [Unknown]
  - Drug ineffective [Unknown]
